FAERS Safety Report 8037456 (Version 2)
Quarter: 2013Q3

REPORT INFORMATION
  Report Type: Report from Study
  Country: US (occurrence: US)
  Receive Date: 20110715
  Receipt Date: 20130711
  Transmission Date: 20140515
  Serious: Yes (Death, Other)
  Sender: FDA-Public Use
  Company Number: US-CELGENEUS-163-21660-11071462

PATIENT
  Sex: 0

DRUGS (3)
  1. ABRAXANE [Suspect]
     Indication: NON-SMALL CELL LUNG CANCER
     Dosage: 300 MILLIGRAM/SQ. METER
     Route: 065
  2. ABRAXANE [Suspect]
     Dosage: 260 MILLIGRAM/SQ. METER
     Route: 065
  3. CARBOPLATIN [Suspect]
     Indication: NON-SMALL CELL LUNG CANCER
     Dosage: AUC=6
     Route: 065

REACTIONS (10)
  - Death [Fatal]
  - Sudden death [Fatal]
  - Respiratory failure [Fatal]
  - Haematotoxicity [Unknown]
  - Febrile neutropenia [Unknown]
  - Infection [Unknown]
  - Peripheral sensory neuropathy [Unknown]
  - Dyspnoea [Unknown]
  - Dehydration [Unknown]
  - Disease progression [Unknown]
